FAERS Safety Report 7795962-9 (Version None)
Quarter: 2011Q4

REPORT INFORMATION
  Report Type: 
  Country: None (occurrence: None)
  Receive Date: 20111004
  Receipt Date: 20110923
  Transmission Date: 20120403
  Serious: Yes (Other)
  Sender: FDA-Public Use
  Company Number: US-BAYER-2011-020088

PATIENT
  Age: 27 Year
  Sex: Female
  Weight: 61.224 kg

DRUGS (8)
  1. EFFEXOR [Concomitant]
     Indication: DEPRESSION
  2. VICODIN [Concomitant]
  3. AMBIEN [Concomitant]
  4. CEFOXITIN [Concomitant]
  5. LEXAPRO [Concomitant]
  6. DROSPIRENONE AND ETHINYL ESTRADIOL [Suspect]
     Indication: CONTRACEPTION
     Dosage: UNK
     Dates: start: 20080101, end: 20090301
  7. BENADRYL [Concomitant]
  8. YASMIN [Suspect]
     Indication: CONTRACEPTION
     Dosage: UNK
     Dates: start: 20030801, end: 20080501

REACTIONS (3)
  - CHOLECYSTITIS CHRONIC [None]
  - CHOLECYSTECTOMY [None]
  - PAIN [None]
